FAERS Safety Report 4354763-4 (Version None)
Quarter: 2004Q2

REPORT INFORMATION
  Report Type: 
  Country: None (occurrence: None)
  Receive Date: 20040507
  Receipt Date: 20040303
  Transmission Date: 20050107
  Serious: Yes (Hospitalization)
  Sender: FDA-Public Use
  Company Number: US-AMGEN-US068346

PATIENT
  Age: 44 Year
  Sex: Female
  Weight: 61.3 kg

DRUGS (14)
  1. NEUPOGEN [Suspect]
     Indication: CHEMOTHERAPY
     Dates: start: 20030804, end: 20040227
  2. NEULASTA [Suspect]
     Dates: start: 20040203
  3. CYCLOPHOSPHAMIDE [Concomitant]
  4. METHOTREXATE [Concomitant]
  5. FLUOROURACIL [Concomitant]
  6. KYTRIL [Concomitant]
  7. DECADRON [Concomitant]
  8. PROTONIX [Concomitant]
     Dates: start: 20040223
  9. GLUCOSAMINE [Concomitant]
  10. CHONDROITIN [Concomitant]
  11. COLACE [Concomitant]
  12. AMBIEN [Concomitant]
  13. CALCIUM [Concomitant]
  14. MULTI-VITAMINS [Concomitant]

REACTIONS (3)
  - ACUTE FEBRILE NEUTROPHILIC DERMATOSIS [None]
  - MASTITIS [None]
  - PANNICULITIS [None]
